FAERS Safety Report 6756888-2 (Version None)
Quarter: 2010Q2

REPORT INFORMATION
  Report Type: 
  Country: None (occurrence: None)
  Receive Date: 20100604
  Receipt Date: 20100528
  Transmission Date: 20101027
  Serious: Yes (Death, Life-Threatening, Other)
  Sender: FDA-Public Use
  Company Number: US-PURDUE-USA-2010-0044158

PATIENT
  Sex: Male

DRUGS (1)
  1. OXYCONTIN [Suspect]
     Indication: DRUG ABUSE
     Route: 055

REACTIONS (5)
  - COMA [None]
  - DEATH [None]
  - DRUG ABUSE [None]
  - OVERDOSE [None]
  - ROAD TRAFFIC ACCIDENT [None]
